FAERS Safety Report 18581231 (Version 2)
Quarter: 2020Q4

REPORT INFORMATION
  Report Type: Spontaneous
  Country: JP (occurrence: JP)
  Receive Date: 20201204
  Receipt Date: 20201204
  Transmission Date: 20210114
  Serious: Yes (Hospitalization, Other)
  Sender: FDA-Public Use
  Company Number: NVSJ2020JP012635

PATIENT
  Age: 84 Year
  Sex: Male

DRUGS (1)
  1. ZOLEDRONIC ACID FOR I.V. INFUSION [Suspect]
     Active Substance: ZOLEDRONIC ACID
     Indication: BONE DENSITY DECREASED
     Dosage: 5 MG, UNK
     Route: 041

REACTIONS (6)
  - Hyperkalaemia [Unknown]
  - Acute kidney injury [Unknown]
  - Oliguria [Unknown]
  - Renal tubular necrosis [Unknown]
  - Product use in unapproved indication [Unknown]
  - Pulmonary oedema [Unknown]
